FAERS Safety Report 10203530 (Version 1)
Quarter: 2014Q2

REPORT INFORMATION
  Report Type: Spontaneous
  Country: AU (occurrence: None)
  Receive Date: 20140523
  Receipt Date: 20140523
  Transmission Date: 20141212
  Serious: Yes (Other)
  Sender: FDA-Public Use
  Company Number: 2014000156

PATIENT
  Age: 63 Year
  Sex: Female

DRUGS (10)
  1. ACEON (PERINDOPRIL ERBUMINE) TABLET [Suspect]
     Indication: PRODUCT USED FOR UNKNOWN INDICATION
     Dates: start: 20130527, end: 20130528
  2. CLOPIDOGREL (CLOPIDOGREL SULFATE) [Suspect]
     Indication: PRODUCT USED FOR UNKNOWN INDICATION
     Route: 042
     Dates: start: 20130601, end: 20130601
  3. ASPIRIN (ASPIRIN) [Concomitant]
  4. ATORVASTATIN (ATORVASTATIN) [Concomitant]
  5. GLYCERYL TRINITRATE (GLYCERYL TRINITRATE) [Concomitant]
  6. METFORMIN HYDROCHLORIDE (METFORMIN HYDROCHLORIDE) [Concomitant]
  7. HYDROCHLOROTHIAZIDE W/VALSARTAN (HYDROCHLOROTHIAZIDE W/VALSARTAN) [Concomitant]
  8. METOPROLOL (METOPROLOL) [Concomitant]
  9. TICAGRELOR (TICAGRELOR) [Concomitant]
  10. BISOPROLOL (BISOPROLOL) [Concomitant]

REACTIONS (5)
  - Urticaria [None]
  - Angioedema [None]
  - Stridor [None]
  - Wheezing [None]
  - Dyspnoea [None]
